FAERS Safety Report 20355036 (Version 1)
Quarter: 2022Q1

REPORT INFORMATION
  Report Type: Spontaneous
  Country: US (occurrence: None)
  Receive Date: 20220120
  Receipt Date: 20220120
  Transmission Date: 20220423
  Serious: Yes (Hospitalization)
  Sender: FDA-Public Use
  Company Number: None

PATIENT
  Sex: Female
  Weight: 105.5 kg

DRUGS (3)
  1. CYTARABINE [Suspect]
     Active Substance: CYTARABINE
     Indication: Product used for unknown indication
  2. METHOTREXATE [Concomitant]
     Active Substance: METHOTREXATE
  3. SPRYCEL [Concomitant]
     Active Substance: DASATINIB

REACTIONS (34)
  - Headache [None]
  - Febrile neutropenia [None]
  - Sepsis [None]
  - Hypotension [None]
  - Respiratory rate increased [None]
  - Heart rate increased [None]
  - Pancytopenia [None]
  - Blood sodium decreased [None]
  - COVID-19 [None]
  - Blood lactic acid increased [None]
  - Blood culture positive [None]
  - Staphylococcal infection [None]
  - Laboratory test interference [None]
  - Abdominal pain [None]
  - Diarrhoea [None]
  - Abdominal pain lower [None]
  - Neutropenic colitis [None]
  - Fatigue [None]
  - Blood disorder [None]
  - Electrolyte imbalance [None]
  - Clostridium test positive [None]
  - Hypokalaemia [None]
  - Hypomagnesaemia [None]
  - Hypophosphataemia [None]
  - Platelet transfusion [None]
  - Packed red blood cell transfusion [None]
  - Grief reaction [None]
  - Diabetes mellitus inadequate control [None]
  - Hypophagia [None]
  - Cells in urine [None]
  - SARS-CoV-2 test false positive [None]
  - Sleep apnoea syndrome [None]
  - Obesity [None]
  - Vaccine virus shedding [None]

NARRATIVE: CASE EVENT DATE: 20211211
